FAERS Safety Report 7621043-0 (Version None)
Quarter: 2011Q3

REPORT INFORMATION
  Report Type: 
  Country: None (occurrence: None)
  Receive Date: 20110719
  Receipt Date: 20110331
  Transmission Date: 20111222
  Serious: No
  Sender: FDA-Public Use
  Company Number: US-KINGPHARMUSA00001-K201100372

PATIENT
  Age: 59 Year
  Sex: Female
  Weight: 74.83 kg

DRUGS (8)
  1. LEVOXYL [Suspect]
     Dosage: 112 MCG, QD
     Route: 048
     Dates: start: 20071001, end: 20110101
  2. CLONAZEPAM [Concomitant]
     Indication: ANXIETY
     Dosage: UNK
  3. LEVOXYL [Suspect]
     Dosage: 118.5, QD (ALTERNATED 125 MCG AND 112 MCG)
     Route: 048
     Dates: start: 20110101, end: 20110213
  4. CLONAZEPAM [Concomitant]
     Indication: SLEEP DISORDER
  5. ASCORBIC ACID [Concomitant]
     Dosage: UNK
  6. TRAZODONE [Concomitant]
     Indication: SLEEP DISORDER
     Dosage: UNK
  7. MULTI-VITAMIN [Concomitant]
     Dosage: UNK
  8. LEVOXYL [Suspect]
     Indication: HYPOTHYROIDISM
     Dosage: 125 MCG, QD
     Route: 048
     Dates: start: 20110214

REACTIONS (3)
  - FATIGUE [None]
  - PAIN [None]
  - DRUG INEFFECTIVE [None]
